FAERS Safety Report 25853464 (Version 1)
Quarter: 2025Q3

REPORT INFORMATION
  Report Type: Spontaneous
  Country: JP (occurrence: JP)
  Receive Date: 20250926
  Receipt Date: 20250926
  Transmission Date: 20251020
  Serious: Yes (Hospitalization, Other)
  Sender: MERCK SHARP & DOHME LLC
  Company Number: JP-MSD-2406JPN000381JAA

PATIENT
  Age: 5 Decade
  Sex: Male

DRUGS (4)
  1. JANUVIA [Suspect]
     Active Substance: SITAGLIPTIN PHOSPHATE
     Indication: Oedema peripheral
     Dosage: DOSE DESCRIPTION : 50 MILLIGRAM, QD?DAILY DOSE : 50 MILLIGRAM?CONCENTRATION: 50 MILLIGRAM
     Route: 048
     Dates: start: 202401, end: 202401
  2. JANUVIA [Suspect]
     Active Substance: SITAGLIPTIN PHOSPHATE
     Indication: Oedema peripheral
     Route: 048
  3. VOGLIBOSE [Concomitant]
     Active Substance: VOGLIBOSE
     Indication: Oedema peripheral
     Dosage: DOSE DESCRIPTION : 0.2 MILLIGRAM, TID?DAILY DOSE : 0.6 MILLIGRAM
     Route: 048
     Dates: start: 202401, end: 202401
  4. VALSARTAN [Concomitant]
     Active Substance: VALSARTAN
     Indication: Oedema peripheral
     Dosage: DOSE DESCRIPTION : 80 MILLIGRAM, QD?DAILY DOSE : 80 MILLIGRAM
     Route: 048
     Dates: start: 202401, end: 202401

REACTIONS (5)
  - Hypoglycaemia [Recovered/Resolved]
  - Hypoglycaemic coma [Recovered/Resolved]
  - Prescription drug used without a prescription [Unknown]
  - Intentional product misuse [Unknown]
  - Labelled drug-drug interaction medication error [Unknown]

NARRATIVE: CASE EVENT DATE: 20240101
